FAERS Safety Report 7249905-7 (Version None)
Quarter: 2011Q1

REPORT INFORMATION
  Report Type: 
  Country: None (occurrence: None)
  Receive Date: 20110128
  Receipt Date: 20100726
  Transmission Date: 20110831
  Serious: No
  Sender: FDA-Public Use
  Company Number: A0877501A

PATIENT
  Age: 24 Year
  Sex: Female

DRUGS (1)
  1. BUPROPION HCL [Suspect]
     Indication: DEPRESSION
     Route: 065
     Dates: start: 20100515, end: 20100701

REACTIONS (3)
  - URTICARIA [None]
  - PRURITUS [None]
  - RASH [None]
